FAERS Safety Report 12550254 (Version 1)
Quarter: 2016Q3

REPORT INFORMATION
  Report Type: Spontaneous
  Country: FR (occurrence: FR)
  Receive Date: 20160712
  Receipt Date: 20160712
  Transmission Date: 20161109
  Serious: Yes (Hospitalization, Other)
  Sender: FDA-Public Use
  Company Number: FR-SHIRE-FR201605422

PATIENT
  Age: 66 Year
  Sex: Male
  Weight: 72 kg

DRUGS (11)
  1. RILMENIDINE [Concomitant]
     Active Substance: RILMENIDINE
     Indication: HYPERTENSION
     Dosage: 1 MG, UNKNOWN
     Route: 048
  2. TPN [Concomitant]
     Active Substance: AMINO ACIDS\DEXTROSE\ELECTROLYTES NOS\SOYBEAN OIL
     Indication: NUTRITIONAL SUPPLEMENTATION
     Dosage: UNK, UNKNOWN
     Route: 051
     Dates: start: 2010
  3. LOPERAMIDE [Concomitant]
     Active Substance: LOPERAMIDE
     Indication: ANTIDIARRHOEAL SUPPORTIVE CARE
     Dosage: 2 MG, UNKNOWN
     Route: 048
  4. PANCREATIN [Concomitant]
     Active Substance: PANCRELIPASE
     Indication: PRODUCT USED FOR UNKNOWN INDICATION
     Dosage: 25000 IU, UNKNOWN
     Route: 048
  5. AMINOMIX                           /03395601/ [Concomitant]
     Indication: PARENTERAL NUTRITION
     Dosage: 1 L, 4 TIMES WEEKLY
     Route: 051
  6. REVESTIVE [Suspect]
     Active Substance: TEDUGLUTIDE
     Dosage: 0.34 ML, UNKNOWN
     Route: 058
     Dates: start: 20160525, end: 20160615
  7. REVESTIVE [Suspect]
     Active Substance: TEDUGLUTIDE
     Indication: SHORT-BOWEL SYNDROME
     Dosage: 0.34 ML, UNKNOWN
     Route: 058
     Dates: start: 20160219, end: 20160428
  8. AMLODIPINE [Concomitant]
     Active Substance: AMLODIPINE BESYLATE
     Indication: CALCIUM METABOLISM DISORDER
     Dosage: 5 MG, UNKNOWN
     Route: 048
  9. EUPANTOL [Concomitant]
     Active Substance: PANTOPRAZOLE SODIUM
     Indication: ANTACID THERAPY
     Dosage: 40 MG, UNKNOWN
  10. REVESTIVE [Suspect]
     Active Substance: TEDUGLUTIDE
     Dosage: 0.34 ML, UNKNOWN
     Route: 058
     Dates: start: 20160510, end: 20160516
  11. BIONOLYTE [Concomitant]
     Active Substance: UNSPECIFIED INGREDIENT
     Indication: FLUID REPLACEMENT
     Dosage: 1.5 L, 5 TIMES WEEKLY
     Route: 051

REACTIONS (4)
  - Dyspepsia [Unknown]
  - Hydrocholecystis [Not Recovered/Not Resolved]
  - Cholecystitis [Not Recovered/Not Resolved]
  - Bile duct stone [Not Recovered/Not Resolved]

NARRATIVE: CASE EVENT DATE: 20160425
